FAERS Safety Report 24864242 (Version 1)
Quarter: 2025Q1

REPORT INFORMATION
  Report Type: Spontaneous
  Country: US (occurrence: US)
  Receive Date: 20250120
  Receipt Date: 20250120
  Transmission Date: 20250408
  Serious: Yes (Death, Hospitalization, Other)
  Sender: PFIZER
  Company Number: US-PFIZER INC-202500012956

PATIENT
  Age: 75 Year
  Sex: Male

DRUGS (16)
  1. GLIPIZIDE [Suspect]
     Active Substance: GLIPIZIDE
     Route: 048
  2. GLIPIZIDE [Suspect]
     Active Substance: GLIPIZIDE
  3. AMLODIPINE [Suspect]
     Active Substance: AMLODIPINE BESYLATE
     Route: 048
  4. AMLODIPINE [Suspect]
     Active Substance: AMLODIPINE BESYLATE
  5. METFORMIN [Suspect]
     Active Substance: METFORMIN HYDROCHLORIDE
     Route: 048
  6. METFORMIN [Suspect]
     Active Substance: METFORMIN HYDROCHLORIDE
  7. LISINOPRIL [Suspect]
     Active Substance: LISINOPRIL
     Route: 048
  8. LISINOPRIL [Suspect]
     Active Substance: LISINOPRIL
  9. PIOGLITAZONE [Suspect]
     Active Substance: PIOGLITAZONE
     Route: 048
  10. PIOGLITAZONE [Suspect]
     Active Substance: PIOGLITAZONE
  11. ASPIRIN [Suspect]
     Active Substance: ASPIRIN
     Route: 048
  12. ASPIRIN [Suspect]
     Active Substance: ASPIRIN
  13. GABAPENTIN [Suspect]
     Active Substance: GABAPENTIN
     Route: 048
  14. GABAPENTIN [Suspect]
     Active Substance: GABAPENTIN
  15. ATORVASTATIN [Suspect]
     Active Substance: ATORVASTATIN
     Route: 048
  16. ATORVASTATIN [Suspect]
     Active Substance: ATORVASTATIN

REACTIONS (1)
  - Completed suicide [Fatal]

NARRATIVE: CASE EVENT DATE: 20230101
